FAERS Safety Report 5240896-7 (Version None)
Quarter: 2007Q1

REPORT INFORMATION
  Report Type: 
  Country: None (occurrence: None)
  Receive Date: 20061208
  Receipt Date: 20050811
  Transmission Date: 20070707
  Serious: Yes (Other)
  Sender: FDA-Public Use
  Company Number: 2005UW11926

PATIENT
  Age: 82 Year
  Sex: Male
  Weight: 74.842 kg

DRUGS (6)
  1. CRESTOR [Suspect]
     Indication: BLOOD CHOLESTEROL INCREASED
     Dosage: 5 MG HS PO
     Route: 048
     Dates: start: 20050809
  2. SYNTHROID [Concomitant]
  3. TOPROL-XL [Concomitant]
  4. CENTRUM SILVER [Concomitant]
  5. ECOTRIN [Concomitant]
  6. COLACE [Concomitant]

REACTIONS (1)
  - POLLAKIURIA [None]
